FAERS Safety Report 5455193-4 (Version None)
Quarter: 2007Q3

REPORT INFORMATION
  Report Type: 
  Country: None (occurrence: None)
  Receive Date: 20070918
  Receipt Date: 20070907
  Transmission Date: 20080115
  Serious: Yes (Other)
  Sender: FDA-Public Use
  Company Number: US-JNJFOC-20070901593

PATIENT
  Age: 76 Year
  Sex: Male

DRUGS (9)
  1. ACETAMINOPHEN [Suspect]
  2. ACETAMINOPHEN [Suspect]
     Indication: HEADACHE
     Dosage: 1500-2000MG DAILY, X 20 YEARS
  3. ANACIN [Suspect]
     Indication: HEADACHE
     Dosage: X 20 YEARS
  4. HYDROCHLOROTHIAZIDE [Concomitant]
  5. FUROSEMIDE [Concomitant]
  6. ATENOLOL [Concomitant]
  7. LOSARTAN SODIUM [Concomitant]
  8. PANTOPRAZOLE SODIUM [Concomitant]
  9. CALCIUM BASED ANTACID [Concomitant]

REACTIONS (2)
  - DRUG ABUSER [None]
  - NEPHROPATHY TOXIC [None]
